FAERS Safety Report 10174076 (Version 1)
Quarter: 2014Q2

REPORT INFORMATION
  Report Type: Spontaneous
  Country: US (occurrence: None)
  Receive Date: 20140514
  Receipt Date: 20140514
  Transmission Date: 20141212
  Serious: Yes (Disabling, Other)
  Sender: FDA-Public Use
  Company Number: None

PATIENT
  Age: 45 Year
  Sex: Female
  Weight: 45.36 kg

DRUGS (1)
  1. FORMO CRESOL [Suspect]
     Indication: ENDODONTIC PROCEDURE
     Dates: start: 20140501, end: 20140503

REACTIONS (4)
  - Depression [None]
  - Product taste abnormal [None]
  - Insomnia [None]
  - Heart rate increased [None]
